FAERS Safety Report 22594278 (Version 1)
Quarter: 2023Q2

REPORT INFORMATION
  Report Type: Spontaneous
  Country: US (occurrence: None)
  Receive Date: 20230612
  Receipt Date: 20230612
  Transmission Date: 20230722
  Serious: Yes (Hospitalization)
  Sender: FDA-Public Use
  Company Number: None

PATIENT
  Age: 72 Year
  Sex: Male
  Weight: 122.7 kg

DRUGS (13)
  1. ROMIDEPSIN [Suspect]
     Active Substance: ROMIDEPSIN
     Indication: T-cell lymphoma
     Dosage: 25 MG : DAY 1, 18, 15 INTRAVENOUS?
     Route: 042
     Dates: start: 20221228
  2. ROSUVASTATIN [Concomitant]
     Active Substance: ROSUVASTATIN
     Dates: start: 20221124
  3. lidocaine-prilocaine (EMLA) 2.5-2.5 % cream [Concomitant]
     Dates: start: 20220909
  4. acyclovir (ZOVIRAX) [Concomitant]
     Dates: start: 20220922
  5. cholecalciferol, vitamin D3, (VITAMIN D3 ORAL) [Concomitant]
     Dates: start: 20220218
  6. PEPCID [Concomitant]
     Active Substance: FAMOTIDINE
     Dates: start: 20221006
  7. ALTACE [Concomitant]
     Active Substance: RAMIPRIL
     Dates: start: 20221211
  8. ASPIRIN [Concomitant]
     Active Substance: ASPIRIN
     Dates: start: 20220416
  9. DAPSONE [Concomitant]
     Active Substance: DAPSONE
     Dates: start: 20230104
  10. palonosetron (ALOXI) [Concomitant]
     Dates: start: 20230208
  11. FLONASE [Concomitant]
     Active Substance: FLUTICASONE PROPIONATE
     Dates: start: 20220901
  12. 0  0,0,0	prochlorperazine edisylate (COMPAZINE) [Concomitant]
     Dates: start: 20230208, end: 20230208
  13. AZACITIDINE [Suspect]
     Active Substance: AZACITIDINE

REACTIONS (1)
  - Gastroenteritis viral [None]

NARRATIVE: CASE EVENT DATE: 20230513
